FAERS Safety Report 23571589 (Version 6)
Quarter: 2025Q3

REPORT INFORMATION
  Report Type: Spontaneous
  Country: JP (occurrence: JP)
  Receive Date: 20240227
  Receipt Date: 20250803
  Transmission Date: 20251020
  Serious: Yes (Death, Congenital Anomaly, Other)
  Sender: ALEXION PHARMACEUTICALS
  Company Number: 2024A047299

PATIENT
  Age: 73 Year
  Sex: Female
  Weight: 46 kg

DRUGS (4)
  1. IMFINZI [Suspect]
     Active Substance: DURVALUMAB
     Indication: Bile duct cancer
     Dosage: 1500 MILLIGRAM, Q3W
     Dates: start: 20230913, end: 20230913
  2. CISPLATIN [Concomitant]
     Active Substance: CISPLATIN
     Indication: Bile duct cancer
     Route: 065
     Dates: start: 20230913, end: 20230920
  3. GEMCITABINE HYDROCHLORIDE [Concomitant]
     Active Substance: GEMCITABINE HYDROCHLORIDE
     Indication: Bile duct cancer
     Dates: start: 20230913, end: 20230913
  4. GEMCITABINE HYDROCHLORIDE [Concomitant]
     Active Substance: GEMCITABINE HYDROCHLORIDE
     Dates: start: 20230920, end: 20230920

REACTIONS (4)
  - Liver abscess [Fatal]
  - Septic shock [Fatal]
  - Cerebral infarction [Unknown]
  - Cardio-respiratory arrest [Unknown]

NARRATIVE: CASE EVENT DATE: 20230924
